FAERS Safety Report 24909070 (Version 3)
Quarter: 2025Q1

REPORT INFORMATION
  Report Type: Report from Study
  Country: US (occurrence: US)
  Receive Date: 20250131
  Receipt Date: 20250305
  Transmission Date: 20250408
  Serious: Yes (Other)
  Sender: SUNOVION
  Company Number: US-SMPA-2024MYSCI0100791

PATIENT

DRUGS (2)
  1. ORGOVYX [Suspect]
     Active Substance: RELUGOLIX
     Indication: Prostate cancer
     Route: 048
     Dates: start: 20231204, end: 20231204
  2. ORGOVYX [Suspect]
     Active Substance: RELUGOLIX
     Dosage: 120 MG, QD
     Route: 048
     Dates: start: 20231205

REACTIONS (6)
  - Loss of consciousness [Recovering/Resolving]
  - Dehydration [Unknown]
  - Nasopharyngitis [Unknown]
  - COVID-19 [Unknown]
  - Malaise [Unknown]
  - Product use issue [Unknown]
